FAERS Safety Report 10375621 (Version 2)
Quarter: 2015Q1

REPORT INFORMATION
  Report Type: Spontaneous
  Country: US (occurrence: US)
  Receive Date: 20140811
  Receipt Date: 20150214
  Transmission Date: 20150720
  Serious: No
  Sender: FDA-Public Use
  Company Number: US-GLAXOSMITHKLINE-A1058256A

PATIENT

DRUGS (7)
  1. STEROID CREAM [Concomitant]
     Active Substance: UNSPECIFIED INGREDIENT
     Route: 061
  2. CARBIDOPA + LEVODOPA PROLONGED-RELEASE TABLET [Suspect]
     Active Substance: CARBIDOPA\LEVODOPA
     Indication: PARKINSON^S DISEASE
     Route: 048
     Dates: start: 2008
  3. CARBIDOPA + LEVODOPA TABLET [Suspect]
     Active Substance: CARBIDOPA\LEVODOPA
     Indication: PARKINSON^S DISEASE
     Route: 048
     Dates: start: 2008
  4. AZILECT [Concomitant]
     Active Substance: RASAGILINE MESYLATE
  5. STEROID SOLUTION (EXCEPT SYRUP) [Concomitant]
     Route: 061
  6. ROPINIROLE PROLONGED-RELEASE TABLET [Suspect]
     Active Substance: ROPINIROLE
     Indication: PARKINSON^S DISEASE
     Route: 048
  7. REQUIP XL [Suspect]
     Active Substance: ROPINIROLE HYDROCHLORIDE
     Indication: PARKINSON^S DISEASE
     Route: 048
     Dates: start: 2008

REACTIONS (7)
  - Product substitution issue [None]
  - Adverse drug reaction [Not Recovered/Not Resolved]
  - Drug administration error [Unknown]
  - Somnolence [Unknown]
  - Sleep attacks [Unknown]
  - Nonspecific reaction [Unknown]
  - Adverse event [Unknown]

NARRATIVE: CASE EVENT DATE: 2008
